FAERS Safety Report 7254938-0 (Version None)
Quarter: 2011Q1

REPORT INFORMATION
  Report Type: 
  Country: None (occurrence: None)
  Receive Date: 20110129
  Receipt Date: 20100204
  Transmission Date: 20110831
  Serious: No
  Sender: FDA-Public Use
  Company Number: US-ABBOTT-10P-163-0624681-00

PATIENT
  Sex: Female
  Weight: 57.658 kg

DRUGS (2)
  1. PREDNISONE [Concomitant]
     Indication: RHEUMATOID ARTHRITIS
     Dosage: TAPER
     Route: 048
  2. HUMIRA [Suspect]
     Indication: RHEUMATOID ARTHRITIS
     Route: 058
     Dates: start: 20090101, end: 20091228

REACTIONS (4)
  - INJECTION SITE PAIN [None]
  - RASH ERYTHEMATOUS [None]
  - ARTHRALGIA [None]
  - RASH MACULAR [None]
